FAERS Safety Report 4749058-0 (Version None)
Quarter: 2005Q3

REPORT INFORMATION
  Report Type: 
  Country: None (occurrence: None)
  Receive Date: 20050817
  Receipt Date: 20050803
  Transmission Date: 20060218
  Serious: Yes (Other)
  Sender: FDA-Public Use
  Company Number: A-CH2005-10308

PATIENT
  Age: 55 Year

DRUGS (1)
  1. TRACLEER [Suspect]
     Indication: PULMONARY EMBOLISM
     Dosage: ORAL
     Route: 048

REACTIONS (3)
  - HAEMANGIOMA OF SKIN [None]
  - ONYCHOMADESIS [None]
  - SKIN DISCOLOURATION [None]
